FAERS Safety Report 6912403-1 (Version None)
Quarter: 2010Q3

REPORT INFORMATION
  Report Type: 
  Country: None (occurrence: None)
  Receive Date: 20100806
  Receipt Date: 20080401
  Transmission Date: 20110219
  Serious: No
  Sender: FDA-Public Use
  Company Number: US-PFIZER INC-2008029158

PATIENT
  Age: 55 Year
  Sex: Female
  Weight: 54.43 kg

DRUGS (5)
  1. DILANTIN [Suspect]
     Indication: EPILEPSY
     Dates: start: 19760101
  2. ACTONEL [Concomitant]
  3. SLOW-FE [Concomitant]
  4. CALCIUM [Concomitant]
  5. MULTI-VITAMINS [Concomitant]

REACTIONS (2)
  - ABDOMINAL PAIN [None]
  - HELICOBACTER INFECTION [None]
